FAERS Safety Report 14081929 (Version 6)
Quarter: 2018Q1

REPORT INFORMATION
  Report Type: Report from Study
  Country: DE (occurrence: DE)
  Receive Date: 20171013
  Receipt Date: 20180224
  Transmission Date: 20180508
  Serious: Yes (Hospitalization)
  Sender: FDA-Public Use
  Company Number: PHHO2017DE013882

PATIENT
  Age: 54 Year
  Sex: Female
  Weight: 100 kg

DRUGS (9)
  1. AIN457 [Suspect]
     Active Substance: SECUKINUMAB
     Dosage: UNK
     Route: 058
     Dates: start: 20171109
  2. CYMBALTA [Concomitant]
     Active Substance: DULOXETINE HYDROCHLORIDE
     Indication: MOOD ALTERED
     Dosage: 30 MG, QD (1-0-0)
     Route: 065
     Dates: start: 201209
  3. AIN457 [Suspect]
     Active Substance: SECUKINUMAB
     Indication: ANKYLOSING SPONDYLITIS
     Dosage: 150 MG, /PLA
     Route: 058
     Dates: start: 20170720, end: 20170914
  4. PANTOPRAZOLE [Concomitant]
     Active Substance: PANTOPRAZOLE
     Indication: PROPHYLAXIS AGAINST GASTROINTESTINAL ULCER
     Dosage: 20 MG, QD
     Route: 065
     Dates: start: 20100525, end: 20170926
  5. BUSCOPAN [Concomitant]
     Active Substance: BUTYLSCOPOLAMINE BROMIDE
     Indication: ABDOMINAL PAIN
     Dosage: 10 MG, UNK
     Route: 065
     Dates: start: 20170925, end: 20170925
  6. ARCOXIA [Suspect]
     Active Substance: ETORICOXIB
     Indication: ANKYLOSING SPONDYLITIS
     Dosage: 90 MG, QD (1-0-0)
     Route: 065
     Dates: start: 20170601, end: 20170928
  7. L-THYROXIN [Concomitant]
     Active Substance: LEVOTHYROXINE SODIUM
     Indication: HYPOTHYROIDISM
     Dosage: 75 UG, QD (1-0-0)
     Route: 065
     Dates: start: 20170401
  8. ZALDIAR [Concomitant]
     Active Substance: ACETAMINOPHEN\TRAMADOL HYDROCHLORIDE
     Indication: PAIN
     Dosage: 37.5 MG/325 MG, 0-0-1
     Route: 065
     Dates: start: 20170401, end: 20170928
  9. CYMBALTA [Concomitant]
     Active Substance: DULOXETINE HYDROCHLORIDE
     Indication: DEPRESSION

REACTIONS (1)
  - Abdominal pain [Recovered/Resolved]

NARRATIVE: CASE EVENT DATE: 20170927
